FAERS Safety Report 24938302 (Version 2)
Quarter: 2025Q1

REPORT INFORMATION
  Report Type: Spontaneous
  Country: US (occurrence: US)
  Receive Date: 20250206
  Receipt Date: 20250206
  Transmission Date: 20250409
  Serious: Yes (Death, Other)
  Sender: AMGEN
  Company Number: US-AMGEN-USASP2025019526

PATIENT

DRUGS (3)
  1. PREDNISONE [Suspect]
     Active Substance: PREDNISONE
     Indication: Immunosuppressant drug therapy
     Dosage: UNK MILLIGRAM, QD
     Route: 065
  2. RUXOLITINIB [Suspect]
     Active Substance: RUXOLITINIB
     Indication: Chronic graft versus host disease
     Route: 065
  3. BELUMOSUDIL [Suspect]
     Active Substance: BELUMOSUDIL
     Indication: Chronic graft versus host disease
     Route: 065

REACTIONS (10)
  - Graft versus host disease [Fatal]
  - Viral upper respiratory tract infection [Unknown]
  - Pneumonia viral [Unknown]
  - Graft versus host disease in lung [Unknown]
  - Graft versus host disease oral [Unknown]
  - Graft versus host disease in eye [Unknown]
  - Pneumonia bacterial [Unknown]
  - Headache [Unknown]
  - Therapy partial responder [Unknown]
  - Drug ineffective [Unknown]
